FAERS Safety Report 8005717-8 (Version None)
Quarter: 2011Q4

REPORT INFORMATION
  Report Type: 
  Country: None (occurrence: None)
  Receive Date: 20111223
  Receipt Date: 20111221
  Transmission Date: 20120403
  Serious: Yes (Hospitalization)
  Sender: FDA-Public Use
  Company Number: GXKR2011DE003454

PATIENT
  Sex: Female
  Weight: 58 kg

DRUGS (3)
  1. CARVEDILOL [Suspect]
     Dosage: 6.25 MG - 0 - 3.125 MG
     Route: 048
  2. RAMIPRIL [Suspect]
     Dosage: 5 MG, QD
     Route: 048
  3. AMLODIPINE [Suspect]
     Dosage: 5 MG, QD
     Route: 048

REACTIONS (2)
  - OESOPHAGEAL PAIN [None]
  - CARDIOVASCULAR DISORDER [None]
